FAERS Safety Report 15665952 (Version 2)
Quarter: 2018Q4

REPORT INFORMATION
  Report Type: Report from Study
  Country: BR (occurrence: BR)
  Receive Date: 20181128
  Receipt Date: 20181221
  Transmission Date: 20190205
  Serious: Yes (Congenital Anomaly)
  Sender: FDA-Public Use
  Company Number: BR-GILEAD-2018-0376444

PATIENT
  Age: 0 Year
  Sex: Female
  Weight: 3.76 kg

DRUGS (2)
  1. EMTRICITABINE/TENOFOVIR ALAFENAMIDE [Suspect]
     Active Substance: EMTRICITABINE\TENOFOVIR
     Indication: HIV INFECTION
     Dosage: 225 MG, QD
     Route: 064
     Dates: start: 20180514
  2. TIVICAY [Suspect]
     Active Substance: DOLUTEGRAVIR SODIUM
     Indication: HIV INFECTION
     Dosage: 50 MG, QD
     Route: 064
     Dates: start: 20180514

REACTIONS (2)
  - Foetal exposure during pregnancy [Recovered/Resolved]
  - Congenital skin dimples [Unknown]

NARRATIVE: CASE EVENT DATE: 2018
